FAERS Safety Report 6754382-6 (Version None)
Quarter: 2010Q2

REPORT INFORMATION
  Report Type: 
  Country: None (occurrence: None)
  Receive Date: 20100601
  Receipt Date: 20100524
  Transmission Date: 20101027
  Serious: Yes (Hospitalization, Other)
  Sender: FDA-Public Use
  Company Number: 2010AL003058

PATIENT
  Age: 29 Year
  Sex: Male

DRUGS (2)
  1. PHENYTOIN [Suspect]
     Indication: EPILEPSY
     Dosage: 500 MG;
  2. TOPIRAMATE [Concomitant]

REACTIONS (5)
  - ACIDOSIS [None]
  - HYPOXIA [None]
  - ISCHAEMIA [None]
  - PRIAPISM [None]
  - THERAPEUTIC AGENT TOXICITY [None]
